FAERS Safety Report 14517378 (Version 1)
Quarter: 2018Q1

REPORT INFORMATION
  Report Type: Spontaneous
  Country: US (occurrence: US)
  Receive Date: 20180212
  Receipt Date: 20180212
  Transmission Date: 20180509
  Serious: Yes (Other)
  Sender: FDA-Public Use
  Company Number: US-ROCHE-2066219

PATIENT
  Sex: Female

DRUGS (3)
  1. IBUPROFEN. [Concomitant]
     Active Substance: IBUPROFEN
  2. TYLENOL [Concomitant]
     Active Substance: ACETAMINOPHEN
  3. TAMIFLU [Suspect]
     Active Substance: OSELTAMIVIR PHOSPHATE
     Indication: INFLUENZA
     Route: 065

REACTIONS (5)
  - Hallucination [Unknown]
  - Dyspnoea [Unknown]
  - Anxiety [Unknown]
  - Abnormal behaviour [Unknown]
  - Feeling abnormal [Unknown]
